FAERS Safety Report 17740740 (Version 1)
Quarter: 2020Q2

REPORT INFORMATION
  Report Type: Report from Study
  Country: IT (occurrence: IT)
  Receive Date: 20200504
  Receipt Date: 20200504
  Transmission Date: 20200714
  Serious: Yes (Other)
  Sender: FDA-Public Use
  Company Number: IT-ACCORD-156611

PATIENT
  Age: 67 Year
  Sex: Male
  Weight: 101 kg

DRUGS (1)
  1. OXALIPLATIN. [Suspect]
     Active Substance: OXALIPLATIN
     Indication: PANCREATIC CARCINOMA
     Route: 042

REACTIONS (4)
  - Injection site paraesthesia [Recovering/Resolving]
  - Infusion site erythema [Recovering/Resolving]
  - Off label use [Unknown]
  - Extravasation [Recovering/Resolving]

NARRATIVE: CASE EVENT DATE: 20190805
